FAERS Safety Report 22328963 (Version 1)
Quarter: 2023Q2

REPORT INFORMATION
  Report Type: Spontaneous
  Country: RU (occurrence: RU)
  Receive Date: 20230517
  Receipt Date: 20230517
  Transmission Date: 20230722
  Serious: Yes (Hospitalization, Other)
  Sender: FDA-Public Use
  Company Number: RU-BAYER-2023A066885

PATIENT
  Age: 77 Year
  Sex: Male
  Weight: 61 kg

DRUGS (9)
  1. XARELTO [Suspect]
     Active Substance: RIVAROXABAN
     Indication: Atrial fibrillation
     Dosage: 20 MG, QD
     Route: 048
     Dates: start: 2022
  2. AMBROXOL [Concomitant]
     Active Substance: AMBROXOL
     Dosage: 30 MG, TID
  3. FUROSEMIDE [Concomitant]
     Active Substance: FUROSEMIDE
     Dosage: 40 MG
  4. SPIRONOLACTONE [Concomitant]
     Active Substance: SPIRONOLACTONE
  5. ATORVASTATIN [Concomitant]
     Active Substance: ATORVASTATIN
  6. PERINDOPRIL [Concomitant]
     Active Substance: PERINDOPRIL
  7. PREDNISOLONE [Concomitant]
     Active Substance: PREDNISOLONE
  8. CEFOTAXIME [Concomitant]
     Active Substance: CEFOTAXIME SODIUM
  9. FENOTEROL HYDROBROMIDE\IPRATROPIUM BROMIDE [Concomitant]
     Active Substance: FENOTEROL HYDROBROMIDE\IPRATROPIUM BROMIDE

REACTIONS (3)
  - Injection site haemorrhage [Unknown]
  - Chronic obstructive pulmonary disease [Unknown]
  - Respiratory failure [Unknown]

NARRATIVE: CASE EVENT DATE: 20230419
